FAERS Safety Report 7778071-4 (Version None)
Quarter: 2011Q3

REPORT INFORMATION
  Report Type: 
  Country: None (occurrence: None)
  Receive Date: 20110926
  Receipt Date: 20110915
  Transmission Date: 20111222
  Serious: Yes (Hospitalization)
  Sender: FDA-Public Use
  Company Number: FR-PFIZER INC-2011219397

PATIENT
  Age: 63 Year
  Sex: Male
  Weight: 62 kg

DRUGS (6)
  1. CYTARABINE [Suspect]
     Dosage: UNK
     Route: 042
     Dates: start: 20090525
  2. DAUNORUBICIN HCL [Suspect]
     Dosage: UNK
     Dates: start: 20090525
  3. GEMTUZUMAB OZOGAMICIN [Suspect]
     Indication: ACUTE MYELOID LEUKAEMIA
     Dosage: 5 MG/24H, CYCLIC
     Route: 042
     Dates: start: 20090312, end: 20090318
  4. GEMTUZUMAB OZOGAMICIN [Suspect]
     Dosage: UNK
     Route: 042
     Dates: start: 20090525
  5. CYTARABINE [Suspect]
     Indication: ACUTE MYELOID LEUKAEMIA
     Dosage: 360 MG/24H, CYCLIC
     Route: 042
     Dates: start: 20090312, end: 20090318
  6. DAUNORUBICIN HCL [Suspect]
     Indication: ACUTE MYELOID LEUKAEMIA
     Dosage: 110 MG/24H, CYCLIC
     Route: 042
     Dates: start: 20090312, end: 20090314

REACTIONS (1)
  - CLOSTRIDIUM DIFFICILE COLITIS [None]
